FAERS Safety Report 13993662 (Version 1)
Quarter: 2017Q3

REPORT INFORMATION
  Report Type: Spontaneous
  Country: US (occurrence: US)
  Receive Date: 20170920
  Receipt Date: 20170920
  Transmission Date: 20171128
  Serious: No
  Sender: FDA-Public Use
  Company Number: US-PFIZER INC-2017403812

PATIENT
  Age: 66 Year
  Sex: Male
  Weight: 98.88 kg

DRUGS (1)
  1. GABAPENTIN. [Suspect]
     Active Substance: GABAPENTIN
     Indication: NEUROPATHY PERIPHERAL
     Dosage: 400 MG, 4X/DAY
     Route: 048

REACTIONS (2)
  - Malaise [Unknown]
  - Drug ineffective for unapproved indication [Unknown]
